FAERS Safety Report 4444533-0 (Version None)
Quarter: 2004Q3

REPORT INFORMATION
  Report Type: 
  Country: None (occurrence: None)
  Receive Date: 20040902
  Receipt Date: 20040827
  Transmission Date: 20050211
  Serious: Yes (Hospitalization, Other)
  Sender: FDA-Public Use
  Company Number: KII-2004-0013201

PATIENT
  Age: 37 Year
  Sex: Male

DRUGS (2)
  1. OXYCONTIN [Suspect]
     Indication: PAIN
     Dosage: SEE TEXT, ORAL
     Route: 048
  2. CARISPRODOL WITH ASPIRIN () [Suspect]
     Indication: PAIN
     Dosage: SEE TEXT, ORAL
     Route: 048

REACTIONS (9)
  - DIARRHOEA [None]
  - DISORIENTATION [None]
  - DRUG ADDICT [None]
  - DRUG WITHDRAWAL SYNDROME [None]
  - DYSARTHRIA [None]
  - MEDICATION ERROR [None]
  - MUSCLE CRAMP [None]
  - SOMNOLENCE [None]
  - TREMOR [None]
